FAERS Safety Report 6544406-3 (Version None)
Quarter: 2010Q1

REPORT INFORMATION
  Report Type: 
  Country: None (occurrence: None)
  Receive Date: 20100121
  Receipt Date: 20100111
  Transmission Date: 20100710
  Serious: Yes (Death, Hospitalization)
  Sender: FDA-Public Use
  Company Number: US-BIOGENIDEC-2009BI034162

PATIENT
  Sex: Female

DRUGS (13)
  1. AVONEX [Suspect]
     Indication: MULTIPLE SCLEROSIS
     Route: 030
     Dates: start: 20000501
  2. FOSAMAX [Concomitant]
     Route: 048
  3. ARIMIDEX [Concomitant]
     Route: 048
  4. ASPIRIN [Concomitant]
     Route: 048
  5. POLYSPORIN OINTMENT [Concomitant]
     Route: 061
  6. BACLOFEN [Concomitant]
     Route: 048
  7. DULCOLAX [Concomitant]
     Route: 054
  8. LOVENOX [Concomitant]
     Route: 058
  9. PROTONIX [Concomitant]
     Route: 048
  10. ZOCOR [Concomitant]
     Route: 048
  11. ZINC OXIDE [Concomitant]
     Route: 061
  12. TYLENOL (CAPLET) [Concomitant]
     Route: 048
  13. MAALOX [Concomitant]
     Route: 048

REACTIONS (19)
  - ALANINE AMINOTRANSFERASE INCREASED [None]
  - ASPARTATE AMINOTRANSFERASE INCREASED [None]
  - BLOOD ALBUMIN DECREASED [None]
  - BURSA DISORDER [None]
  - COMA [None]
  - DYSAESTHESIA [None]
  - HAEMOGLOBIN DECREASED [None]
  - HAEMORRHAGIC ANAEMIA [None]
  - HYPERCHOLESTEROLAEMIA [None]
  - MULTIPLE SCLEROSIS RELAPSE [None]
  - NEUROGENIC BLADDER [None]
  - NEUROGENIC BOWEL [None]
  - RENAL DISORDER [None]
  - SHOCK [None]
  - THROMBOCYTOPENIA [None]
  - UPPER RESPIRATORY TRACT INFECTION [None]
  - URINARY TRACT INFECTION ENTEROCOCCAL [None]
  - USE OF ACCESSORY RESPIRATORY MUSCLES [None]
  - WHITE BLOOD CELL COUNT DECREASED [None]
